FAERS Safety Report 8090586-0 (Version None)
Quarter: 2012Q1

REPORT INFORMATION
  Report Type: 
  Country: None (occurrence: None)
  Receive Date: 20120129
  Receipt Date: 20111229
  Transmission Date: 20120608
  Serious: No
  Sender: FDA-Public Use
  Company Number: US-ABBOTT-11P-163-0873788-00

PATIENT
  Sex: Male
  Weight: 89.892 kg

DRUGS (23)
  1. HUMIRA [Suspect]
     Dates: start: 20111201
  2. CYANOCOBALAMIN [Concomitant]
     Indication: VITAMIN SUPPLEMENTATION
     Dosage: ONCE DAILY
  3. LEVEMIR [Concomitant]
     Indication: TYPE 2 DIABETES MELLITUS
  4. PREDNISONE TAB [Concomitant]
     Indication: RHEUMATOID ARTHRITIS
     Dates: start: 19910101
  5. VITAMIN B6 [Concomitant]
     Indication: VITAMIN SUPPLEMENTATION
     Dosage: DAILY
  6. SPIRIVA [Concomitant]
     Indication: EMPHYSEMA
     Dosage: DAILY
  7. ASPIRIN [Concomitant]
     Indication: CEREBROVASCULAR ACCIDENT
  8. VITAMIN B COMPLEX CAP [Concomitant]
     Indication: VITAMIN SUPPLEMENTATION
     Dosage: DAILY
  9. ADVAIR DISKUS 100/50 [Concomitant]
     Indication: INTERSTITIAL LUNG DISEASE
  10. SPIRIVA [Concomitant]
     Indication: INTERSTITIAL LUNG DISEASE
  11. MULTI-VITAMINS [Concomitant]
     Indication: VITAMIN SUPPLEMENTATION
     Dosage: DAILY
  12. ATELVIA [Concomitant]
     Indication: BONE DENSITY ABNORMAL
     Dosage: ONCE WEEKLY
  13. VITAMIN E [Concomitant]
     Indication: VITAMIN SUPPLEMENTATION
     Dosage: DAILY
  14. ADVAIR DISKUS 100/50 [Concomitant]
     Indication: EMPHYSEMA
     Dosage: 250/50 BID
  15. EXELON [Concomitant]
     Indication: PRODUCT USED FOR UNKNOWN INDICATION
  16. TOPROL-XL [Concomitant]
     Indication: HYPERTENSION
     Dosage: DAILY
  17. VITAMIN B-12 [Concomitant]
     Indication: VITAMIN SUPPLEMENTATION
     Dosage: DAILY
  18. FISH OIL [Concomitant]
     Indication: SUPPLEMENTATION THERAPY
     Dosage: DAILY
  19. HUMIRA [Suspect]
     Indication: RHEUMATOID ARTHRITIS
  20. EXELON [Suspect]
     Indication: DEMENTIA
  21. DIOVAN HCT [Concomitant]
     Indication: PRODUCT USED FOR UNKNOWN INDICATION
     Dosage: DAILY
  22. ACTOPLUS MET [Concomitant]
     Indication: TYPE 2 DIABETES MELLITUS
     Dosage: 15MG/500MG BID
  23. HUMALOG [Concomitant]
     Indication: TYPE 2 DIABETES MELLITUS
     Dosage: 75/25 DAILY

REACTIONS (5)
  - DIZZINESS [None]
  - ASTHENIA [None]
  - HYPERTENSION [None]
  - MUSCULAR WEAKNESS [None]
  - INTERSTITIAL LUNG DISEASE [None]
